FAERS Safety Report 5203249-3 (Version None)
Quarter: 2006Q4

REPORT INFORMATION
  Report Type: 
  Country: None (occurrence: None)
  Receive Date: 20061016
  Receipt Date: 20060405
  Transmission Date: 20070319
  Serious: Yes (Other)
  Sender: FDA-Public Use
  Company Number: 2006031648

PATIENT
  Age: 43 Year
  Sex: Female

DRUGS (6)
  1. NEURONTIN [Suspect]
  2. CELEXA [Concomitant]
  3. XANAX [Concomitant]
  4. DARVOCET-N 100 [Concomitant]
  5. INSULIN [Concomitant]
  6. ZOLOFT [Concomitant]

REACTIONS (1)
  - SUICIDAL IDEATION [None]
